FAERS Safety Report 6212397-0 (Version None)
Quarter: 2009Q2

REPORT INFORMATION
  Report Type: 
  Country: None (occurrence: None)
  Receive Date: 20090601
  Receipt Date: 20090601
  Transmission Date: 20091009
  Serious: Yes (Other)
  Sender: FDA-Public Use
  Company Number: None

PATIENT
  Age: 23 Year
  Sex: Female
  Weight: 46.2669 kg

DRUGS (1)
  1. BACTRIM DS [Suspect]
     Indication: BACTERIA SPUTUM IDENTIFIED
     Dosage: 800/160 MG PO BID
     Route: 048
     Dates: start: 20090512, end: 20090513

REACTIONS (2)
  - ERYTHEMA [None]
  - URTICARIA [None]
